FAERS Safety Report 14151662 (Version 1)
Quarter: 2017Q4

REPORT INFORMATION
  Report Type: Report from Study
  Country: CA (occurrence: CA)
  Receive Date: 20171102
  Receipt Date: 20171102
  Transmission Date: 20180321
  Serious: Yes (Other)
  Sender: FDA-Public Use
  Company Number: CA-ASTELLAS-2017US044303

PATIENT

DRUGS (2)
  1. FORETINIB [Suspect]
     Active Substance: FORETINIB
     Indication: NON-SMALL CELL LUNG CANCER
     Dosage: UNK UNK, UNKNOWN FREQ.
     Route: 048
  2. ERLOTINIB [Suspect]
     Active Substance: ERLOTINIB
     Indication: NON-SMALL CELL LUNG CANCER
     Dosage: UNK UNK, UNKNOWN FREQ.
     Route: 048

REACTIONS (16)
  - Hypertension [Unknown]
  - Syncope [Unknown]
  - Dry skin [Unknown]
  - Proteinuria [Unknown]
  - Abdominal pain [Unknown]
  - Fatigue [Unknown]
  - Hypocalcaemia [Unknown]
  - Lymphopenia [Unknown]
  - Diarrhoea [Unknown]
  - Rash [Unknown]
  - Paronychia [Unknown]
  - Abdominal distension [Unknown]
  - Purpura [Unknown]
  - Myalgia [Unknown]
  - Hypoalbuminaemia [Unknown]
  - Arthralgia [Unknown]
